FAERS Safety Report 21621778 (Version 1)
Quarter: 2022Q4

REPORT INFORMATION
  Report Type: Other
  Country: None (occurrence: US)
  Receive Date: 20221121
  Receipt Date: 20221121
  Transmission Date: 20230113
  Serious: No
  Sender: FDA-Public Use
  Company Number: US-CHEMI SPA-2135101

PATIENT

DRUGS (2)
  1. TEMOZOLOMIDE [Suspect]
     Active Substance: TEMOZOLOMIDE
     Indication: Non-small cell lung cancer
     Route: 048
  2. METHOXYAMINE [Concomitant]
     Active Substance: METHOXYAMINE
     Route: 048

REACTIONS (2)
  - Anaemia [Unknown]
  - Off label use [Unknown]
